FAERS Safety Report 8503942-0 (Version None)
Quarter: 2012Q3

REPORT INFORMATION
  Report Type: 
  Country: None (occurrence: None)
  Receive Date: 20120711
  Receipt Date: 20120706
  Transmission Date: 20120928
  Serious: Yes (Death)
  Sender: FDA-Public Use
  Company Number: BR-009507513-1207BRA001103

PATIENT

DRUGS (1)
  1. SIMVASTATIN [Suspect]
     Dosage: UNK
     Dates: end: 20120625

REACTIONS (1)
  - DEATH [None]
